FAERS Safety Report 25496593 (Version 3)
Quarter: 2025Q3

REPORT INFORMATION
  Report Type: Spontaneous
  Country: EU (occurrence: EU)
  Receive Date: 20250630
  Receipt Date: 20250714
  Transmission Date: 20251020
  Serious: Yes (Other)
  Sender: ABBVIE
  Company Number: EU-PFIZER INC-PV202500075673

PATIENT
  Age: 26 Year
  Sex: Male

DRUGS (3)
  1. AVIBACTAM\AZTREONAM [Suspect]
     Active Substance: AVIBACTAM\AZTREONAM
     Indication: Enterobacter pneumonia
     Route: 065
     Dates: start: 202503
  2. AVIBACTAM\AZTREONAM [Suspect]
     Active Substance: AVIBACTAM\AZTREONAM
     Indication: Enterobacter pneumonia
     Route: 065
     Dates: start: 202503
  3. VANCOMYCIN [Concomitant]
     Active Substance: VANCOMYCIN
     Indication: Enterobacter pneumonia

REACTIONS (2)
  - Enterobacter pneumonia [Unknown]
  - Disease recurrence [Unknown]

NARRATIVE: CASE EVENT DATE: 20250623
